FAERS Safety Report 8236439-6 (Version None)
Quarter: 2012Q1

REPORT INFORMATION
  Report Type: 
  Country: None (occurrence: None)
  Receive Date: 20120327
  Receipt Date: 20120326
  Transmission Date: 20120608
  Serious: Yes (Other)
  Sender: FDA-Public Use
  Company Number: US-PFIZER INC-2012077580

PATIENT
  Sex: Female
  Weight: 65.76 kg

DRUGS (3)
  1. ATENOLOL [Concomitant]
     Indication: HYPERTENSION
     Dosage: 25 MG, 2X/DAY
  2. HYDROCHLOROTHIAZIDE [Concomitant]
     Indication: HYPERTENSION
     Dosage: 25 MG, DAILY
  3. CELEBREX [Suspect]
     Indication: SWELLING
     Dosage: 200 MG, DAILY
     Route: 048
     Dates: start: 20120201, end: 20120301

REACTIONS (1)
  - CEREBROVASCULAR ACCIDENT [None]
